FAERS Safety Report 11051868 (Version 1)
Quarter: 2015Q2

REPORT INFORMATION
  Report Type: Spontaneous
  Country: JP (occurrence: JP)
  Receive Date: 20150421
  Receipt Date: 20150421
  Transmission Date: 20150821
  Serious: Yes (Death)
  Sender: FDA-Public Use
  Company Number: JP-CUBIST PHARMACEUTICALS, INC.-2015CBST000469

PATIENT

DRUGS (4)
  1. CUBICIN [Suspect]
     Active Substance: DAPTOMYCIN
     Indication: NECROTISING FASCIITIS STREPTOCOCCAL
     Dosage: UNK UNK, UNK
     Route: 065
  2. CLINDAMYCIN [Concomitant]
     Active Substance: CLINDAMYCIN\CLINDAMYCIN PHOSPHATE
     Indication: NECROTISING FASCIITIS STREPTOCOCCAL
     Dosage: UNK UNK, UNK
     Route: 065
  3. MEROPENEM. [Concomitant]
     Active Substance: MEROPENEM
     Indication: NECROTISING FASCIITIS STREPTOCOCCAL
     Dosage: UNK UNK, UNK
     Route: 065
  4. PENICILLIN                         /00000901/ [Concomitant]
     Active Substance: PENICILLIN
     Indication: NECROTISING FASCIITIS STREPTOCOCCAL
     Dosage: UNK UNK, UNK
     Route: 065

REACTIONS (1)
  - Death [Fatal]
